FAERS Safety Report 13695054 (Version 1)
Quarter: 2017Q2

REPORT INFORMATION
  Report Type: Spontaneous
  Country: FR (occurrence: FR)
  Receive Date: 20170627
  Receipt Date: 20170627
  Transmission Date: 20170830
  Serious: Yes (Other)
  Sender: FDA-Public Use
  Company Number: JP-ALLERGAN-1726744US

PATIENT
  Age: 62 Year
  Sex: Female
  Weight: 90 kg

DRUGS (4)
  1. PERINDOPRIL/INDAPAMIDE [Suspect]
     Active Substance: INDAPAMIDE\PERINDOPRIL
     Indication: HYPERTENSION
     Dosage: 8 MG / 2.5 MG A DAY
     Route: 048
  2. NEBIVOLOL HCL - BP [Suspect]
     Active Substance: NEBIVOLOL
     Indication: HYPERTENSION
     Dosage: 2.5 MG, QD
     Route: 048
  3. REMICADE [Suspect]
     Active Substance: INFLIXIMAB
     Indication: RHEUMATOID ARTHRITIS
     Dosage: 5.5 MG/KG, UNK
     Route: 048
     Dates: start: 201605
  4. INIPOMP [Suspect]
     Active Substance: PANTOPRAZOLE SODIUM
     Indication: PRODUCT USED FOR UNKNOWN INDICATION
     Dosage: 40 MG, QD
     Route: 048

REACTIONS (3)
  - Arrhythmia [Recovered/Resolved]
  - Arthralgia [Not Recovered/Not Resolved]
  - Abdominal pain [Not Recovered/Not Resolved]

NARRATIVE: CASE EVENT DATE: 201611
